FAERS Safety Report 16307392 (Version 5)
Quarter: 2022Q3

REPORT INFORMATION
  Report Type: Report from Study
  Country: JP (occurrence: JP)
  Receive Date: 20190514
  Receipt Date: 20220824
  Transmission Date: 20221027
  Serious: Yes (Hospitalization, Other)
  Sender: FDA-Public Use
  Company Number: JP-CHUGAI-C2019009077ROCHE

PATIENT
  Age: 72 Year
  Sex: Male
  Weight: 58 kg

DRUGS (28)
  1. ATEZOLIZUMAB [Suspect]
     Active Substance: ATEZOLIZUMAB
     Indication: Non-small cell lung cancer
     Route: 041
     Dates: start: 20190424, end: 20190424
  2. ATEZOLIZUMAB [Suspect]
     Active Substance: ATEZOLIZUMAB
     Route: 041
     Dates: start: 20190529, end: 20190529
  3. ATEZOLIZUMAB [Suspect]
     Active Substance: ATEZOLIZUMAB
     Route: 041
     Dates: start: 20190621, end: 20190621
  4. ATEZOLIZUMAB [Suspect]
     Active Substance: ATEZOLIZUMAB
     Route: 041
     Dates: start: 20190719, end: 20190719
  5. ATEZOLIZUMAB [Suspect]
     Active Substance: ATEZOLIZUMAB
     Route: 041
     Dates: start: 20190816, end: 20191021
  6. ATEZOLIZUMAB [Suspect]
     Active Substance: ATEZOLIZUMAB
     Dosage: MOST RECENT DOSE : 25/NOV/2019
     Route: 041
     Dates: start: 20191125
  7. BEVACIZUMAB [Suspect]
     Active Substance: BEVACIZUMAB
     Indication: Non-small cell lung cancer
     Dosage: MOST RECENT DOSE : 24/APR/2019
     Route: 041
     Dates: start: 20190424
  8. CARBOPLATIN [Suspect]
     Active Substance: CARBOPLATIN
     Indication: Non-small cell lung cancer
     Dosage: DOSE: AREA UNDER CURVE (AUC) 5
     Route: 041
     Dates: start: 20190424, end: 20190424
  9. CARBOPLATIN [Suspect]
     Active Substance: CARBOPLATIN
     Dosage: DOSE: AREA UNDER CURVE (AUC) 5
     Route: 041
     Dates: start: 20190529, end: 20190529
  10. CARBOPLATIN [Suspect]
     Active Substance: CARBOPLATIN
     Dosage: DOSE: AREA UNDER CURVE (AUC) 5
     Route: 041
     Dates: start: 20190621, end: 20190621
  11. CARBOPLATIN [Suspect]
     Active Substance: CARBOPLATIN
     Dosage: DOSE: AREA UNDER CURVE (AUC) 5?MOST RECENT DOSE : 19/JUL/2019
     Route: 041
     Dates: start: 20190719
  12. ALIMTA [Suspect]
     Active Substance: PEMETREXED DISODIUM
     Indication: Non-small cell lung cancer
     Route: 041
     Dates: start: 20190424, end: 20190424
  13. ALIMTA [Suspect]
     Active Substance: PEMETREXED DISODIUM
     Route: 041
     Dates: start: 20190529, end: 20190529
  14. ALIMTA [Suspect]
     Active Substance: PEMETREXED DISODIUM
     Route: 041
     Dates: start: 20190621, end: 20190621
  15. ALIMTA [Suspect]
     Active Substance: PEMETREXED DISODIUM
     Route: 041
     Dates: start: 20190719, end: 20190719
  16. ALIMTA [Suspect]
     Active Substance: PEMETREXED DISODIUM
     Route: 041
     Dates: start: 20190816, end: 20191021
  17. ALIMTA [Suspect]
     Active Substance: PEMETREXED DISODIUM
     Dosage: MOST RECENT DOSE : 25/NOV/2019
     Route: 041
     Dates: start: 20191125
  18. OLMESARTAN MEDOXOMIL [Concomitant]
     Active Substance: OLMESARTAN MEDOXOMIL
     Indication: Hypertension
     Dosage: AFTER THE BREAKFAST
     Route: 048
  19. NORVASC [Concomitant]
     Active Substance: AMLODIPINE BESYLATE
     Indication: Hypertension
     Dosage: AFTER THE BREAKFAST
     Route: 048
     Dates: start: 2009
  20. NESINA [Concomitant]
     Active Substance: ALOGLIPTIN BENZOATE
     Indication: Type 2 diabetes mellitus
     Dosage: AFTER THE BREAKFAST
     Route: 048
     Dates: start: 2009
  21. URSO [Concomitant]
     Active Substance: URSODIOL
     Indication: Hepatic steatosis
     Dosage: AFTER THE SUPPER IN THE MORNING
     Route: 048
     Dates: start: 2007
  22. LANSOPRAZOLE [Concomitant]
     Active Substance: LANSOPRAZOLE
     Indication: Gastritis prophylaxis
     Dosage: 15MG,ONCE IN1DAY
     Route: 048
     Dates: start: 20190501
  23. HUMALOG [Concomitant]
     Active Substance: INSULIN LISPRO
     Indication: Diabetes mellitus
     Dosage: IT ADMINISTERS IT ACCORDING TO THE SCALE ACCORDING TO IMMEDIATELY AFTER FOOD, ?BS, AND THE DIETARY D
     Route: 058
     Dates: start: 20190424
  24. BETAMETHASONE DIPROPIONATE [Concomitant]
     Active Substance: BETAMETHASONE DIPROPIONATE
     Indication: Skin ulcer
     Dosage: PROPER QUANTITY
     Route: 061
     Dates: start: 20190430
  25. OXAROL [Concomitant]
     Active Substance: MAXACALCITOL
     Indication: Skin ulcer
     Dosage: PROPER QUANTITY
     Route: 061
     Dates: start: 20190430
  26. OXAROL [Concomitant]
     Active Substance: MAXACALCITOL
     Indication: Skin ulcer
     Dosage: PROPER QUANTITY
     Route: 061
     Dates: start: 20190430
  27. BETAMETHASONE DIPROPIONATE [Concomitant]
     Active Substance: BETAMETHASONE DIPROPIONATE
     Indication: Skin ulcer
     Dosage: IT IS A PROPER QUANTITY DURING ONE-TWICE/DAY.
     Route: 061
     Dates: start: 20190430
  28. MAGNESIUM OXIDE [Concomitant]
     Active Substance: MAGNESIUM OXIDE
     Indication: Constipation
     Dosage: AFTER EVERY MEAL
     Route: 048
     Dates: start: 20190430, end: 20190502

REACTIONS (3)
  - Sepsis [Recovered/Resolved]
  - Disseminated intravascular coagulation [Recovered/Resolved]
  - Metastases to central nervous system [Unknown]

NARRATIVE: CASE EVENT DATE: 20190501
